FAERS Safety Report 8918470 (Version 1)
Quarter: 2012Q4

REPORT INFORMATION
  Report Type: 
  Country: GR (occurrence: GR)
  Receive Date: 20121120
  Receipt Date: 20121120
  Transmission Date: 20130627
  Serious: Yes (Other)
  Sender: FDA-Public Use
  Company Number: GR-ABBOTT-12P-066-1009337-00

PATIENT
  Age: 24 Year
  Sex: Female

DRUGS (5)
  1. HUMIRA [Suspect]
     Indication: CROHN^S DISEASE
  2. REMICADE [Suspect]
     Indication: CROHN^S DISEASE
     Dosage: Increase doses and decrease internvals
     Route: 042
  3. METHOTREXATE [Suspect]
     Indication: CROHN^S DISEASE
  4. CERTOLIZUMAB [Concomitant]
     Indication: CROHN^S DISEASE
     Dosage: 400 mg at weeks 0, 2 and four
  5. CERTOLIZUMAB [Concomitant]
     Dosage: 400 mg every month for four months

REACTIONS (10)
  - Duodenal fistula [Unknown]
  - Drug ineffective [Unknown]
  - Pyrexia [Unknown]
  - Crohn^s disease [Unknown]
  - Vomiting [Unknown]
  - Hypophagia [Unknown]
  - C-reactive protein increased [Unknown]
  - Red blood cell sedimentation rate increased [Unknown]
  - Haemoglobin decreased [Unknown]
  - Blood albumin decreased [Unknown]
